FAERS Safety Report 26191843 (Version 1)
Quarter: 2025Q4

REPORT INFORMATION
  Report Type: Spontaneous
  Country: EU (occurrence: EU)
  Receive Date: 20251223
  Receipt Date: 20251223
  Transmission Date: 20260117
  Serious: Yes (Hospitalization)
  Sender: MYLAN
  Company Number: None

PATIENT
  Age: 13 Year
  Sex: Male
  Weight: 31 kg

DRUGS (4)
  1. PREDNISONE [Suspect]
     Active Substance: PREDNISONE
     Indication: Aplasia pure red cell
     Dosage: 27.5 MG TWICE A DAY (2 MG/KG/DAY), THEN FROM 07/05/2025, 22.5 MG IN THE MORNING AND 20 MG IN THE
     Route: 061
     Dates: start: 20250319, end: 20250528
  2. PREDNISONE [Suspect]
     Active Substance: PREDNISONE
     Dosage: 27.5 MG TWICE A DAY (2 MG/KG/DAY), THEN FROM 07/05/2025, 22.5 MG IN THE MORNING AND 20 MG IN THE
     Route: 048
     Dates: start: 20250319, end: 20250528
  3. PREDNISONE [Suspect]
     Active Substance: PREDNISONE
     Dosage: 27.5 MG TWICE A DAY (2 MG/KG/DAY), THEN FROM 07/05/2025, 22.5 MG IN THE MORNING AND 20 MG IN THE
     Route: 048
     Dates: start: 20250319, end: 20250528
  4. PREDNISONE [Suspect]
     Active Substance: PREDNISONE
     Dosage: 27.5 MG TWICE A DAY (2 MG/KG/DAY), THEN FROM 07/05/2025, 22.5 MG IN THE MORNING AND 20 MG IN THE
     Route: 061
     Dates: start: 20250319, end: 20250528

REACTIONS (2)
  - Posterior reversible encephalopathy syndrome [Recovering/Resolving]
  - Reversible cerebral vasoconstriction syndrome [Recovering/Resolving]

NARRATIVE: CASE EVENT DATE: 20250528
